FAERS Safety Report 9178445 (Version 1)
Quarter: 2012Q4

REPORT INFORMATION
  Report Type: 
  Country: US (occurrence: US)
  Receive Date: 20121029
  Receipt Date: 20121029
  Transmission Date: 20130627
  Serious: No
  Sender: FDA-Public Use
  Company Number: US-AMGEN-USASP2012053569

PATIENT
  Age: 60 Year
  Sex: Female
  Weight: 64 kg

DRUGS (20)
  1. ENBREL [Suspect]
     Indication: PRODUCT USED FOR UNKNOWN INDICATION
     Dosage: 50 mg, qwk
     Route: 058
  2. MELOXICAM [Concomitant]
     Dosage: 50 mg, UNK
     Route: 048
  3. METHOTREXATE [Concomitant]
     Dosage: 2.5 mg, UNK
     Route: 048
  4. PROVENTIL                          /00139501/ [Concomitant]
     Dosage: 90 mg, UNK
  5. ALLEGRA [Concomitant]
     Dosage: 30 mg, UNK
     Route: 048
  6. TRAZODONE [Concomitant]
     Dosage: 100 mg, UNK
     Route: 048
  7. LORAZEPAM [Concomitant]
     Dosage: 1 mg, UNK
     Route: 048
  8. FLUOXETINE [Concomitant]
     Dosage: 40 mg, UNK
     Route: 048
  9. LEVOTHYROXIN [Concomitant]
     Dosage: 100 mg, UNK
     Route: 048
  10. NEXIUM                             /01479302/ [Concomitant]
     Dosage: 40 mg, UNK
     Route: 048
  11. STRESS FORMULA                     /02361601/ [Concomitant]
     Dosage: UNK
     Route: 048
  12. VITAMIN D /00107901/ [Concomitant]
     Dosage: 2000 unit, UNK
     Route: 048
  13. POTASSIUM GLUCONATE [Concomitant]
     Dosage: 2.5 mEq, UNK
     Route: 048
  14. CALCIUM D                          /00944201/ [Concomitant]
     Dosage: UNK
     Route: 048
  15. FOLIC ACID [Concomitant]
     Route: 048
  16. VITAMIN A /00056001/ [Concomitant]
     Dosage: UNK
     Route: 048
  17. OMEGA 3                            /01334101/ [Concomitant]
     Dosage: 1000 mg, UNK
     Route: 048
  18. LEUCOVORIN                         /00566701/ [Concomitant]
     Dosage: UNK
  19. CALCIUM [Concomitant]
     Dosage: UNK
     Route: 058
  20. MAGNESIUM-OPTOPAN [Concomitant]
     Dosage: 400 mg, UNK

REACTIONS (2)
  - Impaired healing [Recovered/Resolved]
  - Post procedural infection [Recovered/Resolved]
